FAERS Safety Report 7365470-8 (Version None)
Quarter: 2011Q1

REPORT INFORMATION
  Report Type: 
  Country: None (occurrence: None)
  Receive Date: 20110225
  Receipt Date: 20101222
  Transmission Date: 20110831
  Serious: No
  Sender: FDA-Public Use
  Company Number: 320593

PATIENT
  Age: 64 Year
  Sex: Female

DRUGS (1)
  1. VICTOZA [Suspect]
     Indication: INSULIN RESISTANCE
     Dosage: SUBCUTANEOUS
     Route: 058
     Dates: start: 20101124

REACTIONS (5)
  - NAUSEA [None]
  - CONSTIPATION [None]
  - DYSPEPSIA [None]
  - GASTROOESOPHAGEAL REFLUX DISEASE [None]
  - DECREASED APPETITE [None]
